FAERS Safety Report 11694265 (Version 1)
Quarter: 2015Q4

REPORT INFORMATION
  Report Type: Spontaneous
  Country: US (occurrence: US)
  Receive Date: 20151103
  Receipt Date: 20151103
  Transmission Date: 20160304
  Serious: No
  Sender: FDA-Public Use
  Company Number: US-ASTRAZENECA-2015SF03649

PATIENT
  Age: 21764 Day
  Sex: Female
  Weight: 84.8 kg

DRUGS (6)
  1. LANTUS [Concomitant]
     Active Substance: INSULIN GLARGINE
  2. BABY ASPIRIN [Concomitant]
     Active Substance: ASPIRIN
  3. CHOLESTEROL MEDICINE [Concomitant]
     Active Substance: UNSPECIFIED INGREDIENT
  4. WELLBUTRIN [Concomitant]
     Active Substance: BUPROPION HYDROCHLORIDE
  5. LISINOPRIL. [Concomitant]
     Active Substance: LISINOPRIL
  6. BYDUREON [Suspect]
     Active Substance: EXENATIDE
     Indication: DIABETES MELLITUS
     Route: 058
     Dates: start: 20151007

REACTIONS (4)
  - Vomiting [Unknown]
  - Diabetes mellitus inadequate control [Unknown]
  - Nausea [Unknown]
  - Incorrect product storage [Unknown]

NARRATIVE: CASE EVENT DATE: 20151007
